FAERS Safety Report 4695714-2 (Version None)
Quarter: 2005Q2

REPORT INFORMATION
  Report Type: 
  Country: None (occurrence: None)
  Receive Date: 20050621
  Receipt Date: 20050607
  Transmission Date: 20051028
  Serious: Yes (Hospitalization)
  Sender: FDA-Public Use
  Company Number: EMADSS2002006170

PATIENT
  Age: 29 Year
  Sex: Male
  Weight: 72 kg

DRUGS (5)
  1. REMICADE [Suspect]
     Route: 041
     Dates: start: 20020806
  2. REMICADE [Suspect]
     Indication: CROHN'S DISEASE
     Route: 041
     Dates: start: 20020806
  3. SOLUPRED [Suspect]
     Indication: CROHN'S DISEASE
     Route: 049
     Dates: start: 20020601
  4. IMUREL [Suspect]
     Indication: CROHN'S DISEASE
     Dosage: 2 MG/KG
     Route: 049
     Dates: start: 20020723
  5. PULMICORT [Concomitant]
     Indication: DRUG USE FOR UNKNOWN INDICATION
     Route: 055

REACTIONS (2)
  - PNEUMOCYSTIS JIROVECI INFECTION [None]
  - PNEUMOCYSTIS JIROVECI PNEUMONIA [None]
